FAERS Safety Report 5002301-5 (Version None)
Quarter: 2006Q2

REPORT INFORMATION
  Report Type: 
  Country: None (occurrence: None)
  Receive Date: 20060510
  Receipt Date: 20060503
  Transmission Date: 20061013
  Serious: Yes (Hospitalization)
  Sender: FDA-Public Use
  Company Number: 2006058893

PATIENT
  Age: 81 Year
  Sex: Female

DRUGS (2)
  1. ZANTAC 150 [Suspect]
     Dosage: ORAL
     Route: 048
  2. WARFARIN SODIUM [Suspect]

REACTIONS (3)
  - BLOOD PRESSURE DECREASED [None]
  - MALAISE [None]
  - RECTAL HAEMORRHAGE [None]
